FAERS Safety Report 10602647 (Version 7)
Quarter: 2015Q4

REPORT INFORMATION
  Report Type: Report from Study
  Country: US (occurrence: US)
  Receive Date: 20141124
  Receipt Date: 20151001
  Transmission Date: 20160304
  Serious: Yes (Hospitalization, Other)
  Sender: FDA-Public Use
  Company Number: US-ALEXION-A201404414

PATIENT

DRUGS (1)
  1. SOLIRIS [Suspect]
     Active Substance: ECULIZUMAB
     Indication: HAEMOLYTIC URAEMIC SYNDROME
     Dosage: UNK
     Route: 042

REACTIONS (11)
  - Upper respiratory tract infection [Recovered/Resolved]
  - Blood creatinine increased [Unknown]
  - Clostridium difficile infection [Recovered/Resolved]
  - Unevaluable event [Unknown]
  - Kidney transplant rejection [Not Recovered/Not Resolved]
  - Tonsillitis [Recovered/Resolved]
  - Urinary tract infection [Unknown]
  - Blood creatinine abnormal [Not Recovered/Not Resolved]
  - Laryngitis [Recovered/Resolved]
  - Pyrexia [Recovered/Resolved]
  - Oropharyngeal pain [Recovered/Resolved]

NARRATIVE: CASE EVENT DATE: 20141101
